FAERS Safety Report 8047614-8 (Version None)
Quarter: 2012Q1

REPORT INFORMATION
  Report Type: 
  Country: None (occurrence: None)
  Receive Date: 20120116
  Receipt Date: 20120105
  Transmission Date: 20120608
  Serious: Yes (Hospitalization)
  Sender: FDA-Public Use
  Company Number: US-GLAXOSMITHKLINE-B0760768A

PATIENT
  Age: 61 Year
  Sex: Male
  Weight: 70.5 kg

DRUGS (3)
  1. AVANDAMET [Suspect]
     Indication: DIABETES MELLITUS
     Route: 048
     Dates: start: 20040603, end: 20081201
  2. AVANDIA [Suspect]
     Indication: DIABETES MELLITUS
     Route: 048
  3. AMARYL [Concomitant]

REACTIONS (1)
  - MYOCARDIAL INFARCTION [None]
